FAERS Safety Report 8090258-2 (Version None)
Quarter: 2012Q1

REPORT INFORMATION
  Report Type: 
  Country: None (occurrence: None)
  Receive Date: 20120129
  Receipt Date: 20111108
  Transmission Date: 20120608
  Serious: No
  Sender: FDA-Public Use
  Company Number: US-ABBOTT-11P-163-0872486-00

PATIENT
  Sex: Female
  Weight: 63.56 kg

DRUGS (7)
  1. COREG [Concomitant]
     Indication: HYPERTENSION
  2. DIOVAN [Concomitant]
     Indication: HYPERTENSION
  3. HUMIRA [Suspect]
     Indication: RHEUMATOID ARTHRITIS
  4. BUSPAR [Concomitant]
     Indication: ANXIETY
  5. TOVIAZ [Concomitant]
     Indication: URINARY INCONTINENCE
  6. CELEXA [Concomitant]
     Indication: ANXIETY
  7. PLENDIL [Concomitant]
     Indication: HYPERTENSION

REACTIONS (1)
  - INJECTION SITE HAEMORRHAGE [None]
